FAERS Safety Report 7573409-5 (Version None)
Quarter: 2011Q2

REPORT INFORMATION
  Report Type: 
  Country: None (occurrence: None)
  Receive Date: 20110627
  Receipt Date: 20110412
  Transmission Date: 20111010
  Serious: No
  Sender: FDA-Public Use
  Company Number: A0922691A

PATIENT
  Age: 43 Year
  Sex: Female

DRUGS (2)
  1. NO CONCURRENT MEDICATION [Concomitant]
  2. LAMICTAL [Suspect]
     Indication: EPILEPSY
     Dosage: 200MG PER DAY
     Route: 048
     Dates: start: 20100409

REACTIONS (1)
  - BREATH ODOUR [None]
